FAERS Safety Report 24706897 (Version 1)
Quarter: 2024Q4

REPORT INFORMATION
  Report Type: Spontaneous
  Country: SO (occurrence: SO)
  Receive Date: 20241206
  Receipt Date: 20241206
  Transmission Date: 20250115
  Serious: Yes (Death, Other)
  Sender: ADMA BIOLOGICS
  Company Number: SO-ADMA BIOLOGICS INC.-SO-2024ADM000180

PATIENT
  Age: 55 Year
  Sex: Male

DRUGS (2)
  1. HUMAN IMMUNOGLOBULIN G [Suspect]
     Active Substance: HUMAN IMMUNOGLOBULIN G
     Indication: Guillain-Barre syndrome
     Dosage: 0.4 GRAM PER KILOGRAM, QD
     Route: 042
  2. METOCLOPRAMIDE [Concomitant]
     Active Substance: METOCLOPRAMIDE
     Indication: Ileus paralytic
     Dosage: 10 MILLIGRAM, TID
     Route: 042

REACTIONS (7)
  - Sepsis [Fatal]
  - Respiratory failure [Unknown]
  - Facial paralysis [Unknown]
  - Guillain-Barre syndrome [Unknown]
  - Disease progression [Unknown]
  - Dysphagia [Unknown]
  - Off label use [Unknown]
